FAERS Safety Report 8582422-0 (Version None)
Quarter: 2012Q3

REPORT INFORMATION
  Report Type: 
  Country: None (occurrence: None)
  Receive Date: 20120809
  Receipt Date: 20120720
  Transmission Date: 20120928
  Serious: Yes (Other)
  Sender: FDA-Public Use
  Company Number: JP-GLAXOSMITHKLINE-B0818306A

PATIENT
  Sex: Male

DRUGS (9)
  1. FLUTICASONE PROPIONATE/SALMETEROL [Suspect]
     Dosage: 500MCG PER DAY
     Route: 055
     Dates: start: 20120712, end: 20120714
  2. EBASTINE [Concomitant]
     Indication: HYPERSENSITIVITY
     Dosage: 10MG PER DAY
     Route: 048
     Dates: start: 20120711
  3. LIPIDIL [Concomitant]
     Indication: HYPERLIPIDAEMIA
     Dosage: 53.3MG PER DAY
     Route: 048
     Dates: start: 20120711
  4. LOSARTAN POTASSIUM [Concomitant]
     Indication: HYPERTENSION
     Dosage: 25MG PER DAY
     Route: 048
     Dates: start: 20081201
  5. LIPITOR [Concomitant]
     Indication: HYPERCHOLESTEROLAEMIA
     Dosage: 20MG PER DAY
     Route: 048
     Dates: start: 20070111
  6. FLUTICASONE PROPIONATE/SALMETEROL [Suspect]
     Indication: ASTHMA
     Dosage: 500MCG PER DAY
     Route: 055
     Dates: start: 20120711, end: 20120711
  7. ASPIRIN [Concomitant]
     Indication: ANGINA PECTORIS
     Route: 048
  8. ALLOPURINOL [Concomitant]
     Dosage: 100MG PER DAY
     Route: 048
  9. DILTIAZEM HCL [Concomitant]
     Indication: ANGINA PECTORIS
     Dosage: 100MG PER DAY
     Route: 048
     Dates: start: 19990101

REACTIONS (14)
  - ORTHOPNOEA [None]
  - MUSCULOSKELETAL STIFFNESS [None]
  - CHEST DISCOMFORT [None]
  - EAR PAIN [None]
  - ANXIETY [None]
  - GASTROOESOPHAGEAL REFLUX DISEASE [None]
  - ANAPHYLACTOID REACTION [None]
  - COLD SWEAT [None]
  - FEELING ABNORMAL [None]
  - HYPOAESTHESIA [None]
  - SUPERFICIAL VEIN PROMINENCE [None]
  - DYSPNOEA [None]
  - ACCIDENTAL OVERDOSE [None]
  - DYSPNOEA EXERTIONAL [None]
